FAERS Safety Report 5757967-9 (Version None)
Quarter: 2008Q2

REPORT INFORMATION
  Report Type: 
  Country: None (occurrence: None)
  Receive Date: 20080530
  Receipt Date: 20080523
  Transmission Date: 20081010
  Serious: Yes (Other)
  Sender: FDA-Public Use
  Company Number: 2008SP009947

PATIENT
  Age: 49 Year
  Sex: Male
  Weight: 113.3993 kg

DRUGS (2)
  1. PEG-INTRON [Suspect]
     Indication: HEPATITIS C
     Dates: start: 20080110
  2. RIBAVIRIN [Suspect]
     Indication: HEPATITIS C
     Dosage: PO
     Route: 048
     Dates: start: 20080110

REACTIONS (14)
  - ASTHMA [None]
  - DEPRESSION [None]
  - DIARRHOEA [None]
  - FATIGUE [None]
  - INFLUENZA [None]
  - INJECTION SITE ERYTHEMA [None]
  - MANIA [None]
  - MOOD SWINGS [None]
  - NAUSEA [None]
  - PERICARDITIS [None]
  - PNEUMONIA [None]
  - POOR QUALITY SLEEP [None]
  - SUICIDAL IDEATION [None]
  - WEIGHT DECREASED [None]
